FAERS Safety Report 9797715 (Version 4)
Quarter: 2014Q1

REPORT INFORMATION
  Report Type: Spontaneous
  Country: US (occurrence: US)
  Receive Date: 20140106
  Receipt Date: 20140205
  Transmission Date: 20141002
  Serious: Yes (Other)
  Sender: FDA-Public Use
  Company Number: US-PFIZER INC-2014002513

PATIENT
  Age: 70 Year
  Sex: Female
  Weight: 62.59 kg

DRUGS (5)
  1. LYRICA [Suspect]
     Indication: NEUROPATHY PERIPHERAL
     Dosage: 50 MG, 3X/DAY
     Dates: end: 20131021
  2. URSODIOL [Concomitant]
     Indication: BILIARY CIRRHOSIS PRIMARY
     Dosage: 300 MG, DAILY
  3. SYNTHROID [Concomitant]
     Indication: THYROID DISORDER
     Dosage: 0.088 MG, DAILY
  4. NORVASC [Concomitant]
     Indication: CARDIOVASCULAR DISORDER
     Dosage: 2.5 MG, DAILY
  5. OMEPRAZOLE [Concomitant]
     Indication: DYSPEPSIA
     Dosage: 20 MG, DAILY

REACTIONS (6)
  - Angioedema [Unknown]
  - Erythema [Recovered/Resolved]
  - Swelling face [Recovered/Resolved]
  - Rash macular [Recovered/Resolved]
  - Neuralgia [Unknown]
  - Hypersensitivity [Unknown]
